FAERS Safety Report 9476880 (Version 3)
Quarter: 2013Q4

REPORT INFORMATION
  Report Type: Report from Study
  Country: GB (occurrence: GB)
  Receive Date: 20130826
  Receipt Date: 20131031
  Transmission Date: 20140711
  Serious: Yes (Hospitalization, Other)
  Sender: FDA-Public Use
  Company Number: GB-BRISTOL-MYERS SQUIBB COMPANY-19194802

PATIENT
  Age: 50 Year
  Sex: Female

DRUGS (11)
  1. IPILIMUMAB [Suspect]
     Indication: METASTATIC MALIGNANT MELANOMA
     Dosage: 230MG?243MG
     Route: 042
     Dates: start: 20130617, end: 20130805
  2. DEXAMETHASONE [Suspect]
     Dosage: INITIALLY 4MG, FOLLOWED BY 8MG, 12MG, 10MG AND AGAIN 8MG.
     Route: 048
     Dates: start: 20130709
  3. GLICLAZIDE [Concomitant]
     Route: 048
     Dates: start: 20130708
  4. PROPRANOLOL [Concomitant]
     Route: 048
     Dates: start: 20110324
  5. METFORMIN HCL [Concomitant]
     Dates: start: 20130708
  6. LOPERAMIDE [Concomitant]
     Route: 048
     Dates: start: 20130628
  7. BUSCOPAN [Concomitant]
     Route: 048
     Dates: start: 20130706
  8. LORAZEPAM [Concomitant]
     Route: 048
     Dates: start: 20130805
  9. HUMULIN I [Concomitant]
     Route: 058
     Dates: start: 20130716
  10. HUMALOG [Concomitant]
     Route: 058
     Dates: start: 20130716
  11. ORAMORPH [Concomitant]
     Route: 048
     Dates: start: 20130705

REACTIONS (3)
  - Colitis [Unknown]
  - Vision blurred [Recovered/Resolved with Sequelae]
  - Abdominal pain [Recovered/Resolved with Sequelae]
